FAERS Safety Report 8093412-9 (Version None)
Quarter: 2011Q4

REPORT INFORMATION
  Report Type: 
  Country: None (occurrence: None)
  Receive Date: 20111222
  Receipt Date: 20110926
  Transmission Date: 20120403
  Serious: Yes (Hospitalization)
  Sender: FDA-Public Use
  Company Number: UTC-008518

PATIENT
  Age: 58 Year
  Sex: Female
  Weight: 48.1 kg

DRUGS (2)
  1. TYVASO [Suspect]
     Indication: PULMONARY HYPERTENSION
     Dosage: 168 MCG  (42 MCG, 4 IN 1 D), INHALATION
     Route: 055
     Dates: start: 20101025
  2. TRACLEER [Concomitant]

REACTIONS (2)
  - DECREASED APPETITE [None]
  - ASTHENIA [None]
